FAERS Safety Report 6180578-0 (Version None)
Quarter: 2009Q2

REPORT INFORMATION
  Report Type: 
  Country: None (occurrence: None)
  Receive Date: 20090504
  Receipt Date: 20090504
  Transmission Date: 20091009
  Serious: Yes (Life-Threatening, Disabling)
  Sender: FDA-Public Use
  Company Number: None

PATIENT
  Age: 51 Year
  Sex: Female
  Weight: 42.1845 kg

DRUGS (4)
  1. REBIF [Suspect]
     Indication: MULTIPLE SCLEROSIS
     Dosage: 1 EVERY OTHER DAY SUBCUTANEOUS
     Route: 058
     Dates: start: 20010305, end: 20040622
  2. CLONAZEPAM [Concomitant]
  3. LOVASTATIN [Concomitant]
  4. ANTI SPASAM DRUGS [Concomitant]

REACTIONS (6)
  - DEPRESSION [None]
  - HOMICIDAL IDEATION [None]
  - INFLUENZA LIKE ILLNESS [None]
  - PARTNER STRESS [None]
  - SKIN DISORDER [None]
  - SUICIDAL IDEATION [None]
